FAERS Safety Report 9257723 (Version 2)
Quarter: 2013Q2

REPORT INFORMATION
  Report Type: Spontaneous
  Country: FR (occurrence: None)
  Receive Date: 20130422
  Receipt Date: 20130501
  Transmission Date: 20140414
  Serious: Yes (Other)
  Sender: FDA-Public Use
  Company Number: FK201301245

PATIENT
  Age: 59 Year
  Sex: Male

DRUGS (7)
  1. CEFTRIAXON (MANUFACTURER UNKNOWN) (CEFTRIAXON-DINATRIUM) (CEFTRIAXON-DINATRIUM) [Suspect]
     Indication: ABSCESS
     Dosage: 2 GM, 1 IN 1 D, IV
     Route: 042
  2. LISINOPRIL (LISINOPRIL) (LISINOPRIL) [Concomitant]
  3. ENOXAPARIN (ENOXAPARIN) (ENOXAPARIN) [Concomitant]
  4. PANTOPRAZOL (PANTOPRAZOLE SODIUM) (PANTOPRAZOLE SODIUM) [Concomitant]
  5. CEFOTAXIM (CEFOTAXIME SODIUM) (CEFOTAXIME SODIUM) [Concomitant]
  6. METRONIDAZOL (METRONIDAZOLE) [Concomitant]
  7. FOSFOMYCIN (FOSFOMYCIN) (FOSFOMYCIN) [Concomitant]

REACTIONS (1)
  - Hoigne^s syndrome [None]
